FAERS Safety Report 4458104-3 (Version None)
Quarter: 2004Q3

REPORT INFORMATION
  Report Type: 
  Country: None (occurrence: None)
  Receive Date: 20040924
  Receipt Date: 20040915
  Transmission Date: 20050211
  Serious: Yes (Hospitalization)
  Sender: FDA-Public Use
  Company Number: NL-MERCK-0409NLD00009

PATIENT
  Age: 69 Year
  Sex: Female

DRUGS (2)
  1. MAXALT [Suspect]
     Indication: HEADACHE
     Route: 048
     Dates: start: 20040501, end: 20040517
  2. SUMATRIPTAN SUCCINATE [Concomitant]
     Indication: HEADACHE
     Route: 065
     Dates: start: 20040401, end: 20040501

REACTIONS (4)
  - CONDITION AGGRAVATED [None]
  - DIZZINESS [None]
  - HEADACHE [None]
  - SENSE OF OPPRESSION [None]
